FAERS Safety Report 9838274 (Version 1)
Quarter: 2013Q4

REPORT INFORMATION
  Report Type: Spontaneous
  Country: US (occurrence: None)
  Receive Date: 20131205
  Receipt Date: 20131205
  Transmission Date: 20140711
  Serious: Yes (Hospitalization)
  Sender: FDA-Public Use
  Company Number: 163-POMAL-13081529

PATIENT
  Age: 69 Year
  Sex: Male

DRUGS (9)
  1. POMALYST [Suspect]
     Indication: PLASMA CELL MYELOMA
     Dosage: 2 MG, 1 IN 1 D, PO
     Route: 048
     Dates: start: 20130417
  2. ACYCLOVIR (ACICLOVIR) [Concomitant]
  3. BENADRYL ALLERGY (BENADRYL ALLERGY) [Concomitant]
  4. COUMADIN (WARFARIN SODIUM) [Concomitant]
  5. CURCUMIN (CURCUMIN) [Concomitant]
  6. DEXAMETHASONE (DEXAMETHASONE) [Concomitant]
  7. GABAPENTIN (GABAPENTIN) [Concomitant]
  8. KLOR CON M10 (POTASSIUM CHLORIDE) [Concomitant]
  9. LASIX (FUROSEMIDE) [Concomitant]

REACTIONS (1)
  - Pneumonia [None]
